FAERS Safety Report 5804539-3 (Version None)
Quarter: 2008Q3

REPORT INFORMATION
  Report Type: 
  Country: None (occurrence: None)
  Receive Date: 20080707
  Receipt Date: 20080707
  Transmission Date: 20090109
  Serious: Yes (Disabling)
  Sender: FDA-Public Use
  Company Number: None

PATIENT
  Sex: Male
  Weight: 32.659 kg

DRUGS (1)
  1. SINGULAIR [Suspect]
     Indication: RHINITIS SEASONAL
     Dosage: 5MG DAILY PO
     Route: 048
     Dates: start: 20060101, end: 20070101

REACTIONS (6)
  - ANXIETY [None]
  - EMOTIONAL DISORDER [None]
  - FALL [None]
  - INSOMNIA [None]
  - TREMOR [None]
  - UNEVALUABLE EVENT [None]
